FAERS Safety Report 9275780 (Version 1)
Quarter: 2013Q2

REPORT INFORMATION
  Report Type: Spontaneous
  Country: IL (occurrence: IL)
  Receive Date: 20130507
  Receipt Date: 20130507
  Transmission Date: 20140414
  Serious: Yes (Other)
  Sender: FDA-Public Use
  Company Number: IL-PURDUE-USA-2013-0101920

PATIENT
  Sex: Female

DRUGS (1)
  1. TRAMADOL (SIMILAR TO NDA 21-745) [Suspect]
     Indication: PRODUCT USED FOR UNKNOWN INDICATION
     Dosage: 100 MG, UNK
     Route: 048

REACTIONS (1)
  - Hypercoagulation [Unknown]
